FAERS Safety Report 18935485 (Version 3)
Quarter: 2021Q2

REPORT INFORMATION
  Report Type: Spontaneous
  Country: DE (occurrence: DE)
  Receive Date: 20210224
  Receipt Date: 20210421
  Transmission Date: 20210717
  Serious: Yes (Hospitalization)
  Sender: FDA-Public Use
  Company Number: DE-ROCHE-2774531

PATIENT
  Age: 53 Year
  Sex: Male

DRUGS (4)
  1. NIMODIPINE. [Concomitant]
     Active Substance: NIMODIPINE
  2. OCREVUS [Suspect]
     Active Substance: OCRELIZUMAB
     Indication: PRIMARY PROGRESSIVE MULTIPLE SCLEROSIS
     Dosage: MOST RECENT DOSE OF OCRELIZUMAB 600 MG: 22/JAN/2021
     Route: 065
     Dates: start: 20171207
  3. SATIVEX [Concomitant]
     Active Substance: NABIXIMOLS
  4. DEKRISTOL [Concomitant]
     Active Substance: CHOLECALCIFEROL

REACTIONS (4)
  - Superinfection [Recovering/Resolving]
  - Atelectasis [Unknown]
  - Pleural effusion [Unknown]
  - COVID-19 pneumonia [Recovering/Resolving]

NARRATIVE: CASE EVENT DATE: 20210212
